FAERS Safety Report 6226314 (Version 14)
Quarter: 2014Q2

REPORT INFORMATION
  Report Type: Spontaneous
  Country: US (occurrence: US)
  Receive Date: 20070130
  Receipt Date: 20140409
  Transmission Date: 20141212
  Serious: Yes (Other)
  Sender: FDA-Public Use
  Company Number: PHEH2007US01095

PATIENT
  Age: 55 Year
  Sex: Female

DRUGS (20)
  1. AREDIA [Suspect]
     Indication: METASTASES TO BONE
     Route: 042
     Dates: start: 1999, end: 2002
  2. AREDIA [Suspect]
     Indication: RESORPTION BONE INCREASED
  3. AREDIA [Suspect]
     Indication: HYPERCALCAEMIA
  4. ZOMETA [Suspect]
     Indication: BREAST CANCER METASTATIC
     Route: 042
     Dates: start: 2002, end: 2005
  5. ZOMETA [Suspect]
     Indication: RESORPTION BONE INCREASED
  6. KEFLEX [Concomitant]
     Dosage: 500 MG,
  7. AROMASIN [Concomitant]
     Dosage: 25 MG,
  8. MEGESTROL [Concomitant]
  9. PLAVIX [Concomitant]
     Dosage: 75 MG, QD
  10. ECOTRIN [Concomitant]
     Dosage: 81 MG, QD
  11. NITROGLYCERIN [Concomitant]
     Dosage: 0.2 MG,
  12. TYLENOL [Concomitant]
  13. OXYCONTIN [Concomitant]
  14. PERCOCET [Concomitant]
  15. MEGACE [Concomitant]
  16. TOPROL XL [Concomitant]
     Dosage: 50 MG, BID
  17. COLACE [Concomitant]
     Dosage: 100 MG, TID
  18. SENOKOT [Concomitant]
  19. FEMARA [Concomitant]
  20. COUMADINE [Concomitant]

REACTIONS (80)
  - Osteonecrosis of jaw [Unknown]
  - Injury [Unknown]
  - Pain [Unknown]
  - Decreased interest [Unknown]
  - Emotional distress [Unknown]
  - Periodontal disease [Unknown]
  - Gingival inflammation [Unknown]
  - Gingival bleeding [Unknown]
  - Metastases to bone [Unknown]
  - Pleural effusion [Unknown]
  - Bundle branch block left [Unknown]
  - Chest pain [Unknown]
  - Tachycardia [Unknown]
  - Mass [Unknown]
  - Osteosclerosis [Unknown]
  - Osteomyelitis [Unknown]
  - Bone pain [Unknown]
  - Swelling face [Unknown]
  - Dyspnoea [Unknown]
  - Skin lesion [Unknown]
  - Lymphadenopathy [Unknown]
  - Pulmonary mass [Unknown]
  - Hepatic steatosis [Unknown]
  - Hyperhidrosis [Unknown]
  - Radiation skin injury [Unknown]
  - Metastases to liver [Unknown]
  - Metastases to lung [Unknown]
  - Anaemia [Unknown]
  - Coronary artery disease [Unknown]
  - Chest wall mass [Unknown]
  - Productive cough [Unknown]
  - Metastases to chest wall [Unknown]
  - Tooth infection [Unknown]
  - Eye infection [Unknown]
  - Hepatic lesion [Unknown]
  - Atelectasis [Unknown]
  - Renal cyst [Unknown]
  - Lung infiltration [Unknown]
  - Cardiomegaly [Unknown]
  - Pericardial effusion [Unknown]
  - Metastases to spine [Unknown]
  - Oesophageal carcinoma [Unknown]
  - Second primary malignancy [Unknown]
  - Aortic arteriosclerosis [Unknown]
  - Hypoxia [Unknown]
  - Bone swelling [Unknown]
  - Osteoarthritis [Unknown]
  - Spinal osteoarthritis [Unknown]
  - Breast cancer metastatic [Unknown]
  - Malignant neoplasm progression [Unknown]
  - Cellulitis [Unknown]
  - Wound [Unknown]
  - Pain in jaw [Unknown]
  - Lymphadenopathy mediastinal [Unknown]
  - Sinus tachycardia [Unknown]
  - Musculoskeletal chest pain [Unknown]
  - Pain in extremity [Unknown]
  - Abdominal pain upper [Unknown]
  - Neuropathy peripheral [Unknown]
  - Constipation [Unknown]
  - Wound complication [Unknown]
  - Nodule [Unknown]
  - Aortic valve calcification [Unknown]
  - Mitral valve calcification [Unknown]
  - Left atrial dilatation [Unknown]
  - Pulmonary valve incompetence [Unknown]
  - Supraventricular extrasystoles [Unknown]
  - Ventricular extrasystoles [Unknown]
  - Tricuspid valve incompetence [Unknown]
  - Impaired healing [Unknown]
  - Purulence [Unknown]
  - Tooth loss [Unknown]
  - Oedema [Unknown]
  - Bone fistula [Unknown]
  - Exposed bone in jaw [Unknown]
  - Chronic sinusitis [Unknown]
  - Rhinorrhoea [Unknown]
  - Fistula discharge [Unknown]
  - Osteitis [Unknown]
  - Abscess jaw [Unknown]
